FAERS Safety Report 14647874 (Version 3)
Quarter: 2019Q4

REPORT INFORMATION
  Report Type: Report from Study
  Country: US (occurrence: US)
  Receive Date: 20180316
  Receipt Date: 20191018
  Transmission Date: 20200122
  Serious: Yes (Death, Life-Threatening, Other)
  Sender: FDA-Public Use
  Company Number: US-PFIZER INC-2018104929

PATIENT
  Age: 75 Year
  Sex: Female

DRUGS (2)
  1. BMS-936558 [Suspect]
     Active Substance: NIVOLUMAB
     Indication: NON-SMALL CELL LUNG CANCER
     Dosage: 240 MG, CYCLIC (OVER 30 MINUTES EVERY 2 WEEKS)
     Route: 042
  2. CRIZOTINIB [Suspect]
     Active Substance: CRIZOTINIB
     Indication: NON-SMALL CELL LUNG CANCER
     Dosage: 250 MG, 2X/DAY (CYCLIC)
     Route: 048

REACTIONS (7)
  - Pneumonia [Unknown]
  - Sepsis [Unknown]
  - Alanine aminotransferase increased [Unknown]
  - Pneumonitis [Fatal]
  - Acute myocardial infarction [Unknown]
  - Aspartate aminotransferase increased [Unknown]
  - Rhabdomyolysis [Unknown]
